FAERS Safety Report 6763418-8 (Version None)
Quarter: 2010Q2

REPORT INFORMATION
  Report Type: 
  Country: None (occurrence: None)
  Receive Date: 20100610
  Receipt Date: 20100607
  Transmission Date: 20101027
  Serious: Yes (Other)
  Sender: FDA-Public Use
  Company Number: US-BAYER-201024756NA

PATIENT
  Age: 42 Year
  Sex: Female

DRUGS (14)
  1. BETASERON [Suspect]
     Indication: MULTIPLE SCLEROSIS
     Dosage: TOTAL DAILY DOSE: 2 MIU
     Route: 058
     Dates: start: 20100604
  2. VICODIN [Concomitant]
  3. VALIUM [Concomitant]
  4. NEURONTIN [Concomitant]
  5. ALLEGRA [Concomitant]
  6. XANAX [Concomitant]
  7. OXYBUTYNIN CHLORIDE [Concomitant]
  8. PULMICORT [Concomitant]
  9. NASACORT [Concomitant]
  10. NUTRAMATRIX/NUTRACEUTICALS [Concomitant]
  11. VITAMIN D [Concomitant]
  12. ALBUTEROL [Concomitant]
  13. VICKS DAYQUIL SINUS PRESSURE + PAIN RELIEF W/ IBUPROFEN [Concomitant]
  14. CHLORASEPTIC [Concomitant]

REACTIONS (4)
  - BURNING SENSATION [None]
  - CHEST DISCOMFORT [None]
  - DYSPNOEA [None]
  - FEELING ABNORMAL [None]
